FAERS Safety Report 7585447-7 (Version None)
Quarter: 2011Q2

REPORT INFORMATION
  Report Type: 
  Country: None (occurrence: None)
  Receive Date: 20110624
  Receipt Date: 20110621
  Transmission Date: 20111010
  Serious: Yes (Other)
  Sender: FDA-Public Use
  Company Number: ACO_25137_2011

PATIENT
  Age: 42 Year
  Sex: Female

DRUGS (8)
  1. AMPYRA [Suspect]
     Indication: GAIT DISTURBANCE
     Dosage: 10 MG, Q 12 HRS, ORAL
     Route: 048
     Dates: start: 20100618, end: 20110530
  2. SERTRALINE HYDROCHLORIDE [Concomitant]
  3. OXYBUTYNIN (OXYBUTYNIN) [Concomitant]
  4. STOOL SOFTENER (DOCUSATE SODIUM) [Concomitant]
  5. REBIF [Concomitant]
  6. CALCIUM (CALCIUM) [Concomitant]
  7. AMANTADINE HCL [Suspect]
     Indication: PRODUCT USED FOR UNKNOWN INDICATION
     Dates: end: 20110101
  8. ERGOCALCIFEROL [Concomitant]

REACTIONS (7)
  - SKIN DISORDER [None]
  - WEIGHT DECREASED [None]
  - HYPERHIDROSIS [None]
  - GRAND MAL CONVULSION [None]
  - MULTIPLE SCLEROSIS RELAPSE [None]
  - URINARY TRACT INFECTION [None]
  - DIZZINESS [None]
